FAERS Safety Report 11922345 (Version 2)
Quarter: 2016Q1

REPORT INFORMATION
  Report Type: Spontaneous
  Country: MY (occurrence: MY)
  Receive Date: 20160115
  Receipt Date: 20160127
  Transmission Date: 20160526
  Serious: Yes (Death, Other)
  Sender: FDA-Public Use
  Company Number: MY-PFIZER INC-2016015512

PATIENT
  Age: 72 Year
  Sex: Male

DRUGS (11)
  1. TYGACIL [Suspect]
     Active Substance: TIGECYCLINE
     Dosage: 50 MG, 2X/DAY (EVERY 12 HOURS)
     Route: 041
     Dates: start: 20160110, end: 20160111
  2. INSULIN [Concomitant]
     Active Substance: INSULIN NOS
  3. COTRIMOXAZOLE [Concomitant]
     Active Substance: SULFAMETHOXAZOLE\TRIMETHOPRIM
     Dosage: 400/80, 4 VIALS IVD ONCE DAILY
     Route: 042
  4. COMBIVENT [Concomitant]
     Active Substance: ALBUTEROL SULFATE\IPRATROPIUM BROMIDE
     Dosage: 1UDV, 3X/DAY
     Route: 055
  5. TYGACIL [Suspect]
     Active Substance: TIGECYCLINE
     Indication: PNEUMONIA
     Dosage: 100 MG, 2X/DAY (EVERY 12 HOURS)
     Route: 041
     Dates: start: 20160105, end: 20160106
  6. NOREPINEPHRINE [Concomitant]
     Active Substance: NOREPINEPHRINE\NOREPINEPHRINE BITARTRATE
     Dosage: 0.1 MCG/KG/MIN
  7. EUTHYROX [Concomitant]
     Active Substance: LEVOTHYROXINE SODIUM
     Dosage: 50 UG, 2X/DAY
  8. GENTAMICIN. [Concomitant]
     Active Substance: GENTAMICIN
     Dosage: 120 MG, ALTERNATE DAY
  9. FLUCONAZOLE. [Concomitant]
     Active Substance: FLUCONAZOLE
     Dosage: 200 MG, ALTERNATE DAY
     Route: 048
  10. NEXIUM [Concomitant]
     Active Substance: ESOMEPRAZOLE MAGNESIUM
     Dosage: 1 VIAL, 1X/DAY
     Route: 042
  11. LINEZOLID. [Concomitant]
     Active Substance: LINEZOLID
     Dosage: 1, 2X/DAY
     Route: 048

REACTIONS (2)
  - Arrhythmia [Recovered/Resolved]
  - Ventricular extrasystoles [Recovered/Resolved]

NARRATIVE: CASE EVENT DATE: 20160106
